FAERS Safety Report 7214836-5 (Version None)
Quarter: 2011Q1

REPORT INFORMATION
  Report Type: 
  Country: None (occurrence: None)
  Receive Date: 20110107
  Receipt Date: 20100607
  Transmission Date: 20110831
  Serious: No
  Sender: FDA-Public Use
  Company Number: A0851620A

PATIENT
  Age: 62 Year
  Sex: Female
  Weight: 62.7 kg

DRUGS (1)
  1. LOVAZA [Suspect]
     Route: 048
     Dates: start: 20100101, end: 20100101

REACTIONS (1)
  - ADVERSE EVENT [None]
